FAERS Safety Report 4521893-3 (Version None)
Quarter: 2004Q4

REPORT INFORMATION
  Report Type: 
  Country: None (occurrence: None)
  Receive Date: 20041207
  Receipt Date: 20041123
  Transmission Date: 20050328
  Serious: Yes (Death)
  Sender: FDA-Public Use
  Company Number: BDI-006711

PATIENT
  Age: 82 Year
  Sex: Male

DRUGS (1)
  1. ISOVUE-370 [Suspect]
     Indication: CATHETERISATION CARDIAC
     Dosage: 110 ML ONCE IC
     Dates: start: 20041117, end: 20041117

REACTIONS (3)
  - AGITATION [None]
  - CATHETER RELATED COMPLICATION [None]
  - NAUSEA [None]
